FAERS Safety Report 6629324 (Version 2)
Quarter: 2014Q3

REPORT INFORMATION
  Report Type: Spontaneous
  Country: US (occurrence: None)
  Receive Date: 20080415
  Receipt Date: 20140812
  Transmission Date: 20150326
  Serious: Yes (Other)
  Sender: FDA-Public Use
  Company Number: 2008S1002993

PATIENT
  Age: 64 Year
  Sex: Female

DRUGS (4)
  1. ZOCOR [Concomitant]
     Active Substance: SIMVASTATIN
  2. ASPIRIN (ACETYLSALICYLIC ACID) [Concomitant]
     Active Substance: ASPIRIN
  3. PLENDIL [Concomitant]
     Active Substance: FELODIPINE
  4. PHOSPHO-SODA [Suspect]
     Active Substance: SODIUM PHOSPHATE, DIBASIC\SODIUM PHOSPHATE, MONOBASIC
     Indication: COLONOSCOPY
     Dosage: PO
     Route: 048
     Dates: start: 20000615, end: 20000616

REACTIONS (8)
  - Kidney fibrosis [None]
  - Chills [None]
  - Nephrosclerosis [None]
  - Diarrhoea [None]
  - Vomiting [None]
  - Pyrexia [None]
  - Hypertension [None]
  - Renal failure chronic [None]

NARRATIVE: CASE EVENT DATE: 200006
